FAERS Safety Report 8932492 (Version 1)
Quarter: 2012Q4

REPORT INFORMATION
  Report Type: Spontaneous
  Country: US (occurrence: None)
  Receive Date: 20121126
  Receipt Date: 20121126
  Transmission Date: 20130627
  Serious: Yes (Life-Threatening, Hospitalization, Disabling, Other)
  Sender: FDA-Public Use
  Company Number: None

PATIENT
  Age: 33 Year
  Sex: Female
  Weight: 61.4 kg

DRUGS (2)
  1. MEFLOQUINE [Suspect]
     Indication: MALARIAL PROPHYLAXIS
     Route: 048
     Dates: start: 20041102, end: 20041123
  2. BIRTH CONTROL PILLS NOS [Concomitant]

REACTIONS (17)
  - Brain injury [None]
  - Vestibular disorder [None]
  - Convulsion [None]
  - Panic attack [None]
  - Feeling abnormal [None]
  - Headache [None]
  - Dizziness [None]
  - Psychotic disorder [None]
  - Aphasia [None]
  - Suicidal ideation [None]
  - Insomnia [None]
  - Memory impairment [None]
  - Affective disorder [None]
  - Loss of employment [None]
  - Impaired work ability [None]
  - Photopsia [None]
  - Personality change [None]
